FAERS Safety Report 24096624 (Version 1)
Quarter: 2024Q3

REPORT INFORMATION
  Report Type: Report from Study
  Country: US (occurrence: US)
  Receive Date: 20240716
  Receipt Date: 20240716
  Transmission Date: 20241017
  Serious: Yes (Other)
  Sender: ALNYLAM PHARMACEUTICALS
  Company Number: US-ALNYLAM PHARMACEUTICALS, INC.-ALN-2024-003889

PATIENT

DRUGS (1)
  1. GIVLAARI [Suspect]
     Active Substance: GIVOSIRAN SODIUM
     Indication: Product used for unknown indication
     Dosage: 182.50 MILLIGRAM (189 MG/ML), EVERY 4 WEEKS
     Route: 058
     Dates: start: 20221111, end: 20221111

REACTIONS (3)
  - Porphyria acute [Unknown]
  - Stress [Unknown]
  - Insomnia [Unknown]
